FAERS Safety Report 4503413-2 (Version None)
Quarter: 2004Q4

REPORT INFORMATION
  Report Type: 
  Country: None (occurrence: None)
  Receive Date: 20041117
  Receipt Date: 20041108
  Transmission Date: 20050328
  Serious: Yes (Hospitalization)
  Sender: FDA-Public Use
  Company Number: DE-GLAXOSMITHKLINE-D0045150A

PATIENT
  Age: 41 Year
  Sex: Female

DRUGS (2)
  1. LAMICTAL [Suspect]
     Indication: EPILEPSY
     Route: 048
     Dates: start: 19971124
  2. TRILEPTAL [Suspect]
     Indication: EPILEPSY
     Route: 048

REACTIONS (12)
  - ANURIA [None]
  - HEMIPLEGIA TRANSIENT [None]
  - HEPATIC FAILURE [None]
  - HEPATORENAL SYNDROME [None]
  - MENTAL DISORDER DUE TO A GENERAL MEDICAL CONDITION [None]
  - MULTI-ORGAN FAILURE [None]
  - OLIGURIA [None]
  - PYREXIA [None]
  - RENAL FAILURE ACUTE [None]
  - RHABDOMYOLYSIS [None]
  - STATUS EPILEPTICUS [None]
  - STUPOR [None]
